FAERS Safety Report 21583892 (Version 1)
Quarter: 2022Q4

REPORT INFORMATION
  Report Type: Report from Study
  Country: IT (occurrence: IT)
  Receive Date: 20221111
  Receipt Date: 20221111
  Transmission Date: 20230113
  Serious: Yes (Other)
  Sender: FDA-Public Use
  Company Number: None

PATIENT
  Age: 8 Year
  Sex: Male
  Weight: 27 kg

DRUGS (1)
  1. METHOTREXATE (METHOTREXATE SODIUM) [Suspect]
     Active Substance: METHOTREXATE SODIUM
     Indication: Acute lymphocytic leukaemia
     Dosage: MTX 4500MG IN 24 HOURS, THE LAST CYCLE FORESEEN BY THE PROTOCOL,  METOTRESSATO TEVA
     Dates: start: 20220307, end: 20220307

REACTIONS (6)
  - Petit mal epilepsy [Recovered/Resolved]
  - Leukopenia [Not Recovered/Not Resolved]
  - Hyperphagia [Recovered/Resolved]
  - Irritability [Recovered/Resolved]
  - Insomnia [Recovered/Resolved]
  - Headache [Recovered/Resolved]

NARRATIVE: CASE EVENT DATE: 20220325
